FAERS Safety Report 5848953-9 (Version None)
Quarter: 2008Q3

REPORT INFORMATION
  Report Type: 
  Country: None (occurrence: None)
  Receive Date: 20080819
  Receipt Date: 20080811
  Transmission Date: 20090109
  Serious: Yes (Congenital Anomaly)
  Sender: FDA-Public Use
  Company Number: PHNR2005AU00526

PATIENT
  Sex: Male
  Weight: 4.6 kg

DRUGS (2)
  1. TRILEPTAL [Suspect]
     Dosage: 900MG DAILY
     Route: 064
     Dates: start: 20030301
  2. FOLIC ACID [Concomitant]
     Route: 064

REACTIONS (2)
  - ANKYLOGLOSSIA CONGENITAL [None]
  - DRUG EXPOSURE DURING PREGNANCY [None]
